FAERS Safety Report 4729367-1 (Version None)
Quarter: 2005Q3

REPORT INFORMATION
  Report Type: 
  Country: None (occurrence: None)
  Receive Date: 20050729
  Receipt Date: 20050720
  Transmission Date: 20060218
  Serious: Yes (Death, Hospitalization, Other)
  Sender: FDA-Public Use
  Company Number: PHBS2005JP10400

PATIENT
  Age: 82 Year
  Sex: Female

DRUGS (11)
  1. TEGRETOL [Suspect]
     Dosage: UNK, UNK
     Route: 048
     Dates: start: 20040618, end: 20040814
  2. SLOW-K [Concomitant]
     Route: 048
     Dates: start: 20040618, end: 20040731
  3. EMPYNASE [Concomitant]
     Route: 048
     Dates: start: 20040618, end: 20040731
  4. PEMILASTON [Concomitant]
     Route: 048
     Dates: start: 20040618, end: 20040731
  5. GASTER [Concomitant]
     Route: 048
     Dates: start: 20040731, end: 20040814
  6. BUP-4 [Concomitant]
     Route: 048
     Dates: start: 20040731, end: 20040814
  7. ASPARA K [Concomitant]
     Route: 048
     Dates: start: 20040731, end: 20040814
  8. NITOROL [Concomitant]
     Route: 048
     Dates: start: 20040618
  9. ROCORNAL [Concomitant]
     Route: 048
     Dates: start: 20040618
  10. RYTHMODAN [Concomitant]
     Route: 048
     Dates: start: 20040618
  11. BUFFERIN [Concomitant]
     Dates: start: 20040618

REACTIONS (8)
  - ALANINE AMINOTRANSFERASE INCREASED [None]
  - CYTOMEGALOVIRUS ANTIBODY POSITIVE [None]
  - DRUG HYPERSENSITIVITY [None]
  - HUMAN HERPES VIRUS 6 SEROLOGY POSITIVE [None]
  - LIVER DISORDER [None]
  - PNEUMONIA ASPIRATION [None]
  - PYREXIA [None]
  - RASH [None]
